FAERS Safety Report 6349286-7 (Version None)
Quarter: 2009Q3

REPORT INFORMATION
  Report Type: 
  Country: None (occurrence: None)
  Receive Date: 20090911
  Receipt Date: 20090901
  Transmission Date: 20100115
  Serious: Yes (Death)
  Sender: FDA-Public Use
  Company Number: A0806791A

PATIENT
  Age: 61 Year
  Sex: Female

DRUGS (1)
  1. AVANDIA [Suspect]
     Indication: HYPERTENSION
     Dosage: 4MG PER DAY
     Route: 065
     Dates: start: 20050101, end: 20070101

REACTIONS (3)
  - CARDIAC ARREST [None]
  - DEATH [None]
  - HAEMORRHAGIC STROKE [None]
